FAERS Safety Report 9535277 (Version 1)
Quarter: 2013Q3

REPORT INFORMATION
  Report Type: Spontaneous
  Country: US (occurrence: US)
  Receive Date: 20130918
  Receipt Date: 20130918
  Transmission Date: 20140515
  Serious: Yes (Other)
  Sender: FDA-Public Use
  Company Number: US-PFIZER INC-2013268265

PATIENT
  Age: 58 Year
  Sex: Male
  Weight: 122 kg

DRUGS (9)
  1. LITHIUM CARBONATE [Suspect]
     Dosage: UNK
     Dates: end: 2012
  2. MORPHINE SULFATE [Suspect]
     Indication: PAIN IN EXTREMITY
     Dosage: UNK
  3. GABAPENTIN [Suspect]
     Dosage: 300 MG, 2X/DAY
     Dates: start: 2005, end: 201206
  4. NEXIUM [Concomitant]
     Indication: BARRETT^S OESOPHAGUS
     Dosage: 40 MG, 2X/DAY
  5. PRISTIQ [Concomitant]
     Indication: DEPRESSION
     Dosage: 50 MG, 1X/DAY
  6. PRAVASTATIN [Concomitant]
     Indication: BLOOD CHOLESTEROL ABNORMAL
     Dosage: 80 MG, 1X/DAY
  7. CENTRUM SILVER [Concomitant]
     Indication: VITAMIN SUPPLEMENTATION
     Dosage: UNK
  8. FISH OIL [Concomitant]
     Dosage: UNK
  9. CODEINE [Concomitant]
     Indication: PAIN IN EXTREMITY
     Dosage: UNK
     Dates: end: 201204

REACTIONS (3)
  - Chronic inflammatory demyelinating polyradiculoneuropathy [Unknown]
  - Multiple sclerosis [Unknown]
  - Tremor [Unknown]
